FAERS Safety Report 5258010-0 (Version None)
Quarter: 2007Q1

REPORT INFORMATION
  Report Type: 
  Country: None (occurrence: None)
  Receive Date: 20061220
  Receipt Date: 20060911
  Transmission Date: 20070707
  Serious: No
  Sender: FDA-Public Use
  Company Number: 2006RL000348

PATIENT

DRUGS (1)
  1. OMACOR [Suspect]
     Dosage: 1 GM; PO
     Route: 048

REACTIONS (1)
  - BLOOD GLUCOSE INCREASED [None]
